FAERS Safety Report 11174585 (Version 1)
Quarter: 2015Q2

REPORT INFORMATION
  Report Type: Spontaneous
  Country: US (occurrence: US)
  Receive Date: 20150609
  Receipt Date: 20150609
  Transmission Date: 20150821
  Serious: Yes (Other)
  Sender: FDA-Public Use
  Company Number: US-PFIZER INC-2015191999

PATIENT
  Age: 53 Year
  Sex: Female

DRUGS (1)
  1. LIPITOR [Suspect]
     Active Substance: ATORVASTATIN CALCIUM
     Dosage: UNK, AS DIRECTED
     Route: 048
     Dates: start: 1999, end: 2014

REACTIONS (1)
  - Type 2 diabetes mellitus [Unknown]

NARRATIVE: CASE EVENT DATE: 2004
